FAERS Safety Report 13143023 (Version 3)
Quarter: 2017Q1

REPORT INFORMATION
  Report Type: Spontaneous
  Country: PR (occurrence: PR)
  Receive Date: 20170124
  Receipt Date: 20170322
  Transmission Date: 20170428
  Serious: No
  Sender: FDA-Public Use
  Company Number: PR-PFIZER INC-2017027196

PATIENT
  Age: 68 Year
  Sex: Female
  Weight: 57.14 kg

DRUGS (2)
  1. IBRANCE [Suspect]
     Active Substance: PALBOCICLIB
     Indication: BREAST CANCER FEMALE
     Dosage: 125 MG, DAILY
     Route: 048
     Dates: start: 20161226
  2. IBRANCE [Suspect]
     Active Substance: PALBOCICLIB
     Dosage: 125 MG, DAILY
     Route: 048
     Dates: start: 20161227

REACTIONS (9)
  - Weight decreased [Unknown]
  - Burning sensation [Unknown]
  - Hepatic pain [Unknown]
  - Nausea [Not Recovered/Not Resolved]
  - Gastritis [Unknown]
  - Erythema [Unknown]
  - Alopecia [Unknown]
  - Fatigue [Unknown]
  - Pruritus [Unknown]
